FAERS Safety Report 10157831 (Version 1)
Quarter: 2014Q2

REPORT INFORMATION
  Report Type: Spontaneous
  Country: US (occurrence: US)
  Receive Date: 20140507
  Receipt Date: 20140507
  Transmission Date: 20141212
  Serious: Yes (Other)
  Sender: FDA-Public Use
  Company Number: US-ASTELLAS-2014US004742

PATIENT
  Sex: Male

DRUGS (8)
  1. PROGRAF [Suspect]
     Indication: ORGAN TRANSPLANT
     Dosage: UNK, UNKNOWN FREQ.
     Route: 065
  2. PROGRAF [Suspect]
     Indication: SMALL INTESTINE TRANSPLANT
  3. PROGRAF [Suspect]
     Indication: ORGAN TRANSPLANT
  4. PROGRAF [Suspect]
     Indication: PANCREAS TRANSPLANT
  5. TACROLIMUS [Suspect]
     Indication: ORGAN TRANSPLANT
     Dosage: UNK, UNKNOWN FREQ.
     Route: 065
  6. TACROLIMUS [Suspect]
     Indication: SMALL INTESTINE TRANSPLANT
  7. TACROLIMUS [Suspect]
     Indication: ORGAN TRANSPLANT
  8. TACROLIMUS [Suspect]
     Indication: PANCREAS TRANSPLANT

REACTIONS (8)
  - Hepatic failure [Unknown]
  - Lymphoma [Unknown]
  - Gastrointestinal carcinoma [Unknown]
  - Organ transplant [Unknown]
  - Small intestine transplant [Unknown]
  - Liver transplant [Unknown]
  - Renal failure [Unknown]
  - Off label use [Unknown]
